FAERS Safety Report 9561161 (Version 1)
Quarter: 2013Q3

REPORT INFORMATION
  Report Type: Spontaneous
  Country: GB (occurrence: None)
  Receive Date: 20130925
  Receipt Date: 20130925
  Transmission Date: 20140515
  Serious: Yes (Other)
  Sender: FDA-Public Use
  Company Number: 1907029

PATIENT
  Age: 62 Year
  Sex: Male
  Weight: 95 kg

DRUGS (8)
  1. IRINOTECAN HYDROCHLORIDE [Suspect]
     Indication: PANCREATIC CARCINOMA
     Dosage: 420 MG MILLIGRAM(S), 1 DAY, INTRAVENOUS (NOT OTHERWISE SPECIFIED)
     Route: 042
     Dates: start: 20130318, end: 20130715
  2. OXALIPLATIN [Suspect]
     Indication: PANCREATIC CARCINOMA
     Dosage: 200 MG MILLIGRAM(S), 1 DAY, INTRAVENOUS (NOT OTHERWISE SPECIFIED)
     Route: 042
     Dates: start: 20130318, end: 20130715
  3. FLUOROURACIL [Suspect]
     Indication: PANCREATIC CARCINOMA
     Dosage: 6600 MG MILLIGRAM(S), 1 DAY, INTRAVENOUS (NOT OTHERWISE SPECIFIED)
     Route: 042
     Dates: start: 20130318, end: 20130717
  4. CITALOPRAM [Concomitant]
  5. AMYLASE/LIPASE/PROTEASE [Concomitant]
  6. VALSARTAN [Concomitant]
  7. ALCOHOL [Concomitant]
  8. CODEINE PHOSPHATE [Concomitant]

REACTIONS (5)
  - Confusional state [None]
  - Weight decreased [None]
  - Restlessness [None]
  - Activities of daily living impaired [None]
  - Blood test abnormal [None]
